FAERS Safety Report 6133657-8 (Version None)
Quarter: 2009Q1

REPORT INFORMATION
  Report Type: 
  Country: None (occurrence: None)
  Receive Date: 20090326
  Receipt Date: 20090325
  Transmission Date: 20090719
  Serious: Yes (Death, Hospitalization, Other)
  Sender: FDA-Public Use
  Company Number: A0774041A

PATIENT
  Age: 77 Year
  Sex: Male

DRUGS (10)
  1. MELPHALAN [Suspect]
     Indication: MULTIPLE MYELOMA
     Route: 065
  2. REVLIMID [Suspect]
     Indication: MULTIPLE MYELOMA
     Dosage: 10MG PER DAY
     Route: 048
     Dates: start: 20081126, end: 20081126
  3. PREDNISONE [Suspect]
     Indication: MULTIPLE MYELOMA
  4. VELCADE [Suspect]
     Indication: MULTIPLE MYELOMA
  5. ASPIRIN [Concomitant]
     Dosage: 81MG PER DAY
     Dates: start: 20080701, end: 20081208
  6. METOPROLOL TARTRATE [Concomitant]
     Dosage: 50MG TWICE PER DAY
     Dates: start: 20080701, end: 20081208
  7. ATORVASTATIN [Concomitant]
     Dosage: 40MG PER DAY
     Dates: start: 20080701, end: 20081208
  8. CLOPIDOGREL [Concomitant]
     Dosage: 75MG PER DAY
     Dates: start: 20080701, end: 20081208
  9. FUROSEMIDE [Concomitant]
  10. DARBOPOETIN ALFA [Concomitant]
     Dosage: 40MCG WEEKLY

REACTIONS (10)
  - ASTHENIA [None]
  - CARDIAC FAILURE CONGESTIVE [None]
  - CORONARY ARTERY DISEASE [None]
  - ESSENTIAL HYPERTENSION [None]
  - LEFT ATRIAL DILATATION [None]
  - MITRAL VALVE INCOMPETENCE [None]
  - MYOCARDIAL INFARCTION [None]
  - RENAL FAILURE CHRONIC [None]
  - RESPIRATORY FAILURE [None]
  - RIGHT VENTRICULAR DYSFUNCTION [None]
